FAERS Safety Report 8388276-X (Version None)
Quarter: 2012Q2

REPORT INFORMATION
  Report Type: 
  Country: None (occurrence: None)
  Receive Date: 20120525
  Receipt Date: 20120522
  Transmission Date: 20120825
  Serious: Yes (Other)
  Sender: FDA-Public Use
  Company Number: DE-PFIZER INC-2012123298

PATIENT
  Age: 58 Year
  Sex: Male
  Weight: 110 kg

DRUGS (4)
  1. NEUPRO [Concomitant]
     Indication: RESTLESS LEGS SYNDROME
     Dosage: 6 MG, 1X/DAY
     Route: 062
     Dates: start: 20100805
  2. CARVEDILOL [Concomitant]
     Indication: HYPERTENSION
     Dosage: 12.5 MG, UNK
     Route: 048
  3. RAMIPRIL [Suspect]
     Dosage: 20 MG, UNK
     Route: 048
     Dates: start: 20100701, end: 20111101
  4. RAMIPRIL [Suspect]
     Indication: HYPERTENSION
     Dosage: 10 MG, UNK

REACTIONS (1)
  - RESTLESS LEGS SYNDROME [None]
